FAERS Safety Report 18643777 (Version 1)
Quarter: 2020Q4

REPORT INFORMATION
  Report Type: Spontaneous
  Country: US (occurrence: US)
  Receive Date: 20201221
  Receipt Date: 20201221
  Transmission Date: 20210114
  Serious: Yes (Hospitalization)
  Sender: FDA-Public Use
  Company Number: None

PATIENT
  Age: 46 Year
  Sex: Female
  Weight: 79.4 kg

DRUGS (5)
  1. OXALIPLATIN. [Suspect]
     Active Substance: OXALIPLATIN
     Indication: COLON CANCER METASTATIC
     Dosage: ?          OTHER FREQUENCY:EVERY 14 DAYS;?
     Route: 042
     Dates: start: 20200722, end: 20200722
  2. OXALIPLATIN. [Concomitant]
     Active Substance: OXALIPLATIN
     Dates: start: 20200610, end: 20200722
  3. TISSUE PLASMINOGEN ACTIVATOR [Concomitant]
     Active Substance: ALTEPLASE
     Dates: start: 20200722, end: 20200722
  4. FLUOROURACIL. [Suspect]
     Active Substance: FLUOROURACIL
     Dates: start: 20200610, end: 20201125
  5. LEUCOVORIN. [Suspect]
     Active Substance: LEUCOVORIN
     Dates: start: 20200610, end: 20201125

REACTIONS (5)
  - Dyspnoea [None]
  - Hypersensitivity [None]
  - Hypoaesthesia [None]
  - Swollen tongue [None]
  - Therapy interrupted [None]

NARRATIVE: CASE EVENT DATE: 20200722
